FAERS Safety Report 5418842-2 (Version None)
Quarter: 2007Q3

REPORT INFORMATION
  Report Type: 
  Country: None (occurrence: None)
  Receive Date: 20070718
  Receipt Date: 20060803
  Transmission Date: 20080115
  Serious: Yes (Hospitalization)
  Sender: FDA-Public Use
  Company Number: 2006090159

PATIENT
  Age: 50 Year
  Sex: Female
  Weight: 103.4201 kg

DRUGS (2)
  1. CELEBREX [Suspect]
     Indication: RHEUMATOID ARTHRITIS
     Dosage: 200 MG (200 MG, 1 IN 1 D) :  400 MG (200 MG, 2 IN 1 D)
     Dates: start: 20000216, end: 20000315
  2. CELEBREX [Suspect]
     Indication: RHEUMATOID ARTHRITIS
     Dosage: 200 MG (200 MG, 1 IN 1 D) :  400 MG (200 MG, 2 IN 1 D)
     Dates: start: 20000316, end: 20020820

REACTIONS (1)
  - MYOCARDIAL INFARCTION [None]
